FAERS Safety Report 20189257 (Version 1)
Quarter: 2021Q4

REPORT INFORMATION
  Report Type: Spontaneous
  Country: US (occurrence: None)
  Receive Date: 20211215
  Receipt Date: 20211215
  Transmission Date: 20220303
  Serious: Yes (Hospitalization)
  Sender: FDA-Public Use
  Company Number: None

PATIENT
  Sex: Female

DRUGS (16)
  1. AMBRISENTAN [Suspect]
     Active Substance: AMBRISENTAN
     Indication: Pulmonary arterial hypertension
     Route: 048
  2. CEFDINIR SUS 250/5ML [Concomitant]
  3. CIPROFLOXACN SOL [Concomitant]
  4. FLUTICASONE SPR [Concomitant]
  5. HC VALERATE OIN [Concomitant]
  6. IPRATROPIUM SOL 0.02% [Concomitant]
  7. MULTl-VIT/FL CHW [Concomitant]
  8. NASONEX [Concomitant]
     Active Substance: MOMETASONE FUROATE
  9. PERMETHRIN CRE 5% [Concomitant]
  10. POLY-VIT/FL DRO [Concomitant]
  11. RANITIDINE SYP [Concomitant]
  12. SINGULAIR CHW [Concomitant]
  13. TADALAFIL [Concomitant]
     Active Substance: TADALAFIL
  14. TAMIFLU SUS [Concomitant]
  15. TRIAMCINOLONE ACETONIDE [Concomitant]
     Active Substance: TRIAMCINOLONE ACETONIDE
  16. XOPENEX NEB [Concomitant]

REACTIONS (1)
  - Hospitalisation [None]
